FAERS Safety Report 21783918 (Version 2)
Quarter: 2023Q1

REPORT INFORMATION
  Report Type: Report from Study
  Country: US (occurrence: US)
  Receive Date: 20221227
  Receipt Date: 20230105
  Transmission Date: 20230417
  Serious: Yes (Other)
  Sender: FDA-Public Use
  Company Number: US-MYLANLABS-202200744865

PATIENT
  Age: 0 Year
  Sex: Female

DRUGS (26)
  1. SILDENAFIL [Suspect]
     Active Substance: SILDENAFIL
     Indication: Bronchopulmonary dysplasia
     Dosage: 2 MILLIGRAM ((1 MG, 2X/DAY ENTERAL)
     Route: 065
     Dates: start: 20220512, end: 20220514
  2. SILDENAFIL [Suspect]
     Active Substance: SILDENAFIL
     Dosage: 4 MILLIGRAM ( 2 MILLIGRAM (2 IN 1 DAY)(ENTERAL)
     Route: 065
     Dates: start: 20220515, end: 20220609
  3. FERROUS SULFATE [Concomitant]
     Active Substance: FERROUS SULFATE
     Indication: Mineral supplementation
     Dosage: UNK 2(2 IN 1 DAYS)
     Route: 048
     Dates: start: 20220417
  4. CYCLOPENTOLATE;PHENYLEPHRINE [Concomitant]
     Indication: Pupil dilation procedure
     Dosage: UNK(TID, 3 IN 1 DAYS)
     Route: 031
     Dates: start: 20220501, end: 20220501
  5. CYCLOPENTOLATE;PHENYLEPHRINE [Concomitant]
     Dosage: UNK(TID, 3 IN 1 DAYS,
     Route: 031
     Dates: start: 20220504, end: 20220504
  6. CYCLOPENTOLATE;PHENYLEPHRINE [Concomitant]
     Dosage: UNK (3 IN 1 DAYS, )
     Route: 031
     Dates: start: 20220511, end: 20220511
  7. CYCLOPENTOLATE;PHENYLEPHRINE [Concomitant]
     Dosage: UNK(3 IN 1 DAYS,)
     Route: 031
     Dates: start: 20220518, end: 20220518
  8. FUROSEMIDE [Concomitant]
     Active Substance: FUROSEMIDE
     Indication: Pulmonary oedema
     Dosage: UNK (1 (1 IN 1 DAYS)
     Route: 042
     Dates: start: 20220422, end: 20220422
  9. FUROSEMIDE [Concomitant]
     Active Substance: FUROSEMIDE
     Indication: Bronchopulmonary dysplasia
     Dosage: UNK 1 (1 IN 1 DAYS)
     Route: 042
     Dates: start: 20220423
  10. DEXAMETHASONE [Concomitant]
     Active Substance: DEXAMETHASONE
     Indication: Prophylaxis
     Dosage: UNK (2 (2 IN 1 DAYS)
     Route: 048
     Dates: start: 20220418, end: 20220427
  11. HYDROCORTISONE [Concomitant]
     Active Substance: HYDROCORTISONE
     Indication: Adrenal insufficiency
     Dosage: UNK (3 (3 IN 1 DAYS)
     Route: 048
     Dates: start: 20220422, end: 20220504
  12. HYDROCORTISONE [Concomitant]
     Active Substance: HYDROCORTISONE
     Dosage: UNK ((2  IN 1 DAYS)
     Route: 048
     Dates: start: 20220501, end: 20220506
  13. HYDROCORTISONE [Concomitant]
     Active Substance: HYDROCORTISONE
     Indication: Adrenal insufficiency
     Dosage: UNK (3 (3 IN 1 DAY)
     Route: 042
     Dates: start: 20220314, end: 20220422
  14. LORAZEPAM [Concomitant]
     Active Substance: LORAZEPAM
     Indication: Agitation
     Dosage: UNK
     Route: 048
     Dates: start: 20220502, end: 20220502
  15. POTASSIUM CHLORIDE [Concomitant]
     Active Substance: POTASSIUM CHLORIDE
     Indication: Mineral supplementation
     Dosage: UNK (2 (2 IN 1 DAYS)
     Route: 048
     Dates: start: 20220506
  16. SODIUM CHLORIDE [Concomitant]
     Active Substance: SODIUM CHLORIDE
     Indication: Supplementation therapy
     Dosage: UNK (2 (2 IN 1 DAYS)
     Route: 048
     Dates: start: 20220417
  17. HEPARIN [Concomitant]
     Active Substance: HEPARIN SODIUM
     Indication: Catheter management
     Dosage: UNK (CONTINUOUS INFUSION)
     Route: 042
     Dates: start: 20220418, end: 20220422
  18. FENTANYL [Concomitant]
     Active Substance: FENTANYL
     Indication: Agitation
     Dosage: UNK (CONTINUOUS, INTRAVENOUS, INFUSION)
     Route: 042
     Dates: start: 20220413, end: 20220419
  19. FENTANYL [Concomitant]
     Active Substance: FENTANYL
     Dosage: UNK (CONTINUOUS, INTRAVENOUS, INFUSION)
     Route: 042
     Dates: start: 20220419, end: 20220422
  20. FENTANYL [Concomitant]
     Active Substance: FENTANYL
     Dosage: UNK
     Route: 042
     Dates: start: 20220419, end: 20220421
  21. FENTANYL [Concomitant]
     Active Substance: FENTANYL
     Dosage: UNK (INFUSION)
     Route: 042
     Dates: start: 20220421, end: 20220422
  22. ALBUTEROL [Concomitant]
     Active Substance: ALBUTEROL
     Indication: Dyspnoea
     Dosage: UNK ((1 IN 1 DAYS), NEBULISER SOLUTION
     Route: 045
     Dates: start: 20220502, end: 20220502
  23. ALBUTEROL [Concomitant]
     Active Substance: ALBUTEROL
     Dosage: UNK (1 (1 IN L DAYS)
     Route: 045
     Dates: start: 20220504, end: 20220504
  24. ALBUTEROL [Concomitant]
     Active Substance: ALBUTEROL
     Dosage: UNK (1 (1 IN L DAYS)
     Route: 045
     Dates: start: 20220505, end: 20220505
  25. MORPHINE [Concomitant]
     Active Substance: MORPHINE
     Indication: Agitation
     Dosage: UNK (ENTERAL) (0.06 MG - 0.38 MG )
     Route: 065
     Dates: start: 20220422, end: 20220518
  26. MORPHINE [Concomitant]
     Active Substance: MORPHINE
     Dosage: UNK (2 (2 IN 1 DAY)
     Route: 065
     Dates: start: 20220518

REACTIONS (2)
  - Retinopathy of prematurity [Recovered/Resolved with Sequelae]
  - Condition aggravated [Recovered/Resolved with Sequelae]

NARRATIVE: CASE EVENT DATE: 20220518
